FAERS Safety Report 13547312 (Version 1)
Quarter: 2017Q2

REPORT INFORMATION
  Report Type: Spontaneous
  Country: IT (occurrence: IT)
  Receive Date: 20170515
  Receipt Date: 20170515
  Transmission Date: 20170830
  Serious: Yes (Disabling, Other)
  Sender: FDA-Public Use
  Company Number: IT-MILLENNIUM PHARMACEUTICALS, INC.-2011-04361

PATIENT
  Age: 65 Year
  Sex: Male

DRUGS (5)
  1. DEXAMETHASONE. [Concomitant]
     Active Substance: DEXAMETHASONE
     Dosage: 20 MG, UNK
     Route: 048
     Dates: start: 201101, end: 20110715
  2. VELCADE [Suspect]
     Active Substance: BORTEZOMIB
     Indication: PLASMA CELL MYELOMA
     Dosage: 1.3 MG/M2, UNK
     Route: 042
     Dates: start: 201101, end: 20110715
  3. ESOMEPRAZOLE [Concomitant]
     Active Substance: ESOMEPRAZOLE
     Dosage: 20 MG, UNK
     Route: 048
  4. FLUCONAZOLE. [Concomitant]
     Active Substance: FLUCONAZOLE
     Dosage: 400 MG, UNK
     Route: 048
  5. ACICLOVIR [Concomitant]
     Active Substance: ACYCLOVIR
     Dosage: 800 MG, BID
     Route: 048

REACTIONS (6)
  - Neurotoxicity [Unknown]
  - Dysaesthesia [Recovering/Resolving]
  - Asthenia [Recovering/Resolving]
  - Orthostatic hypotension [Recovering/Resolving]
  - Diarrhoea [Recovering/Resolving]
  - Dyspnoea [Recovering/Resolving]

NARRATIVE: CASE EVENT DATE: 2011
